FAERS Safety Report 8614351-8 (Version None)
Quarter: 2012Q3

REPORT INFORMATION
  Report Type: 
  Country: None (occurrence: None)
  Receive Date: 20120823
  Receipt Date: 20120814
  Transmission Date: 20120928
  Serious: Yes (Hospitalization, Other)
  Sender: FDA-Public Use
  Company Number: US-JNJFOC-20120808319

PATIENT
  Sex: Male
  Weight: 72.58 kg

DRUGS (2)
  1. LAMOTRIGINE [Concomitant]
     Indication: ARTHRITIS
     Route: 048
     Dates: start: 20110101, end: 20120701
  2. REMICADE [Suspect]
     Indication: RHEUMATOID ARTHRITIS
     Route: 042
     Dates: start: 20110101, end: 20120701

REACTIONS (2)
  - CARDIAC SEPTAL DEFECT [None]
  - PNEUMONIA [None]
